FAERS Safety Report 8125683-4 (Version None)
Quarter: 2012Q1

REPORT INFORMATION
  Report Type: 
  Country: None (occurrence: None)
  Receive Date: 20120206
  Receipt Date: 20120123
  Transmission Date: 20120608
  Serious: Yes (Other)
  Sender: FDA-Public Use
  Company Number: 2012AP000206

PATIENT
  Age: 62 Year
  Sex: Male

DRUGS (6)
  1. ZOLPIDEM [Suspect]
     Indication: INSOMNIA
     Dosage: 10 MG;UNKNOWN;PO;QD
     Route: 048
  2. SIMVASTATIN [Concomitant]
  3. BENDROFLUMETHIAZIDE(BENDROFLUMETHIAZIDE) [Concomitant]
  4. PAROXETINE HCL [Suspect]
     Indication: DEPRESSION
     Dosage: 30 MG;UNKNOWN;PO;UNKNOWN
     Route: 048
  5. AMLODIPINE [Concomitant]
  6. LORATADINE [Concomitant]

REACTIONS (4)
  - INSOMNIA [None]
  - MEMORY IMPAIRMENT [None]
  - CONFUSIONAL STATE [None]
  - LOSS OF LIBIDO [None]
